FAERS Safety Report 16156022 (Version 1)
Quarter: 2019Q2

REPORT INFORMATION
  Report Type: Spontaneous
  Country: US (occurrence: US)
  Receive Date: 20190404
  Receipt Date: 20190404
  Transmission Date: 20190711
  Serious: No
  Sender: FDA-Public Use
  Company Number: US-ASTRAZENECA-2019SE39034

PATIENT
  Age: 19754 Day
  Sex: Female
  Weight: 107.5 kg

DRUGS (1)
  1. FARXIGA [Suspect]
     Active Substance: DAPAGLIFLOZIN PROPANEDIOL
     Indication: TYPE 2 DIABETES MELLITUS
     Route: 048
     Dates: start: 201811, end: 20190305

REACTIONS (8)
  - Vulvovaginal mycotic infection [Unknown]
  - Vulvovaginal discomfort [Not Recovered/Not Resolved]
  - Vulval disorder [Recovered/Resolved]
  - Vaginal cellulitis [Not Recovered/Not Resolved]
  - Dysuria [Not Recovered/Not Resolved]
  - Urethral disorder [Unknown]
  - Urinary incontinence [Not Recovered/Not Resolved]
  - Pollakiuria [Not Recovered/Not Resolved]

NARRATIVE: CASE EVENT DATE: 201811
